FAERS Safety Report 6801411-7 (Version None)
Quarter: 2010Q2

REPORT INFORMATION
  Report Type: 
  Country: None (occurrence: None)
  Receive Date: 20100629
  Receipt Date: 20100624
  Transmission Date: 20101027
  Serious: Yes (Hospitalization, Other)
  Sender: FDA-Public Use
  Company Number: B0592543A

PATIENT
  Sex: Female

DRUGS (3)
  1. PAROXETINE [Suspect]
     Route: 065
  2. METHYLENE BLUE [Suspect]
  3. ANAESTHETIC [Concomitant]
     Route: 065

REACTIONS (10)
  - AGITATION [None]
  - APHASIA [None]
  - CLONUS [None]
  - CONFUSIONAL STATE [None]
  - DRUG INTERACTION [None]
  - EYE DISORDER [None]
  - HYPERREFLEXIA [None]
  - HYPERTENSION [None]
  - MYDRIASIS [None]
  - SEROTONIN SYNDROME [None]
